FAERS Safety Report 12702961 (Version 1)
Quarter: 2016Q3

REPORT INFORMATION
  Report Type: Report from Study
  Country: CN (occurrence: CN)
  Receive Date: 20160831
  Receipt Date: 20160831
  Transmission Date: 20161109
  Serious: Yes (Hospitalization, Other)
  Sender: FDA-Public Use
  Company Number: CN-GLAXOSMITHKLINE-CN2016086099

PATIENT
  Age: 61 Year
  Sex: Male
  Weight: 66.6 kg

DRUGS (1)
  1. UMECLIDINIUM BR+VILANTEROL TRIFENATATE [Suspect]
     Active Substance: UMECLIDINIUM BROMIDE\VILANTEROL TRIFENATATE
     Indication: CHRONIC OBSTRUCTIVE PULMONARY DISEASE
     Dosage: 1 PUFF(S), QD
     Route: 055
     Dates: start: 20151118

REACTIONS (1)
  - Angina unstable [Recovered/Resolved]

NARRATIVE: CASE EVENT DATE: 20160531
